FAERS Safety Report 11866646 (Version 3)
Quarter: 2016Q1

REPORT INFORMATION
  Report Type: Spontaneous
  Country: JP (occurrence: JP)
  Receive Date: 20151224
  Receipt Date: 20160201
  Transmission Date: 20160526
  Serious: Yes (Hospitalization, Other)
  Sender: FDA-Public Use
  Company Number: JP-VIFOR (INTERNATIONAL) INC.-VIT-2015-03594

PATIENT
  Age: 12 Year
  Sex: Female
  Weight: 23 kg

DRUGS (26)
  1. MIRCERA [Suspect]
     Active Substance: METHOXY POLYETHYLENE GLYCOL-EPOETIN BETA
     Route: 058
     Dates: start: 201507, end: 2015
  2. SEPAMIT-R [Suspect]
     Active Substance: NIFEDIPINE
     Indication: HYPERTENSION
     Route: 048
     Dates: start: 20150522, end: 20150525
  3. SEPAMIT-R [Suspect]
     Active Substance: NIFEDIPINE
     Route: 048
     Dates: start: 20150526, end: 20150528
  4. SEPAMIT-R [Suspect]
     Active Substance: NIFEDIPINE
     Route: 048
     Dates: start: 20150529, end: 20150601
  5. MIRCERA [Suspect]
     Active Substance: METHOXY POLYETHYLENE GLYCOL-EPOETIN BETA
     Indication: NEPHROGENIC ANAEMIA
     Route: 058
     Dates: start: 20111212, end: 2015
  6. MIZORIBINE [Suspect]
     Active Substance: MIZORIBINE
     Indication: PRODUCT USED FOR UNKNOWN INDICATION
     Route: 065
     Dates: start: 20141208, end: 20141216
  7. SEPAMIT-R [Suspect]
     Active Substance: NIFEDIPINE
     Route: 048
     Dates: start: 20150602, end: 20150809
  8. SEPAMIT-R [Suspect]
     Active Substance: NIFEDIPINE
     Route: 048
     Dates: start: 20150810, end: 20150823
  9. TAKEPRON [Concomitant]
     Active Substance: LANSOPRAZOLE
     Route: 048
     Dates: start: 201510
  10. BAKTAR [Concomitant]
     Active Substance: SULFAMETHOXAZOLE\TRIMETHOPRIM
     Route: 048
     Dates: start: 201510
  11. SODIUM CHLORIDE. [Concomitant]
     Active Substance: SODIUM CHLORIDE
     Route: 048
     Dates: start: 201510
  12. OLMETEC [Suspect]
     Active Substance: OLMESARTAN MEDOXOMIL
     Route: 048
     Dates: start: 20151019, end: 20151104
  13. MIYA-BM [Concomitant]
     Active Substance: CLOSTRIDIUM BUTYRICUM SPORES STRAIN M-55
     Route: 048
     Dates: start: 201510
  14. LIPACREON [Concomitant]
     Active Substance: PANCRELIPASE
     Route: 048
     Dates: start: 201510
  15. MUCODYNE-DS [Concomitant]
     Active Substance: CARBOCYSTEINE
     Route: 048
     Dates: start: 201510
  16. MUCOSOLVAN DS [Concomitant]
     Dosage: DIVIDED INTO 3 DOSES
     Route: 048
     Dates: start: 201510
  17. SEPAMIT-R [Suspect]
     Active Substance: NIFEDIPINE
     Route: 048
     Dates: start: 20150824, end: 20151104
  18. OLMETEC [Suspect]
     Active Substance: OLMESARTAN MEDOXOMIL
     Indication: HYPERTENSION
     Route: 048
     Dates: start: 20150907, end: 20150926
  19. OLMETEC [Suspect]
     Active Substance: OLMESARTAN MEDOXOMIL
     Route: 048
     Dates: start: 20150927, end: 20151005
  20. GASMOTIN [Concomitant]
     Active Substance: MOSAPRIDE CITRATE
     Dosage: DIVIDED INTO 3 DOSES
     Route: 048
     Dates: start: 201510
  21. MAINTATE [Concomitant]
     Active Substance: BISOPROLOL FUMARATE
     Route: 048
     Dates: start: 201510
  22. MIRCERA [Suspect]
     Active Substance: METHOXY POLYETHYLENE GLYCOL-EPOETIN BETA
     Route: 058
     Dates: start: 20151019
  23. OLMETEC [Suspect]
     Active Substance: OLMESARTAN MEDOXOMIL
     Route: 048
     Dates: start: 20151006, end: 20151018
  24. LEUKERIN [Concomitant]
     Active Substance: MERCAPTOPURINE
     Route: 048
     Dates: start: 201510
  25. PREDNISOLONE. [Concomitant]
     Active Substance: PREDNISOLONE
     Dosage: DIVIDED INTO 3 DOSES
     Route: 048
     Dates: start: 201510
  26. ALFAROL [Concomitant]
     Active Substance: ALFACALCIDOL
     Route: 048
     Dates: start: 201510

REACTIONS (9)
  - Bone marrow failure [Unknown]
  - Pancreatitis [Recovered/Resolved]
  - Pancreatic pseudocyst [Recovering/Resolving]
  - Haemoglobin decreased [Not Recovered/Not Resolved]
  - Hypoproteinaemia [Not Recovered/Not Resolved]
  - Type 1 diabetes mellitus [Not Recovered/Not Resolved]
  - Pallor [Unknown]
  - Blood uric acid increased [Recovered/Resolved]
  - Off label use [Unknown]

NARRATIVE: CASE EVENT DATE: 20141216
